FAERS Safety Report 12438256 (Version 1)
Quarter: 2016Q2

REPORT INFORMATION
  Report Type: Spontaneous
  Country: DE (occurrence: DE)
  Receive Date: 20160606
  Receipt Date: 20160606
  Transmission Date: 20160815
  Serious: Yes (Other)
  Sender: FDA-Public Use
  Company Number: DE-BAYER-2016-108209

PATIENT
  Age: 29 Year
  Sex: Female
  Weight: 68 kg

DRUGS (4)
  1. ESCITALOPRAM [Concomitant]
     Active Substance: ESCITALOPRAM OXALATE
     Dosage: 10 MG, UNK
     Route: 048
     Dates: start: 20160327, end: 20160410
  2. ZOPICLON [Concomitant]
     Active Substance: ZOPICLONE
     Dosage: 7.75 MG, UNK
     Route: 048
     Dates: start: 20160401
  3. MIRENA [Suspect]
     Active Substance: LEVONORGESTREL
     Indication: CONTRACEPTION
     Dosage: 20 MCG/24HR, CONT
     Route: 015
     Dates: start: 201211, end: 20160425
  4. QUETIAPINE. [Concomitant]
     Active Substance: QUETIAPINE
     Dosage: 75 MG, UNK
     Route: 048
     Dates: start: 20160327

REACTIONS (20)
  - Disturbance in attention [Recovering/Resolving]
  - Restlessness [Recovering/Resolving]
  - Sleep disorder [Recovering/Resolving]
  - Aggression [Recovering/Resolving]
  - Infection susceptibility increased [Recovering/Resolving]
  - Insomnia [Recovering/Resolving]
  - Irritability [Recovering/Resolving]
  - Crying [Recovering/Resolving]
  - Depression [Recovering/Resolving]
  - Hot flush [Recovering/Resolving]
  - Hyperhidrosis [Recovering/Resolving]
  - Palpitations [Recovering/Resolving]
  - Suicidal ideation [Recovering/Resolving]
  - Vitamin D deficiency [Recovering/Resolving]
  - Anxiety [Recovering/Resolving]
  - Fatigue [Recovering/Resolving]
  - Loss of libido [Recovering/Resolving]
  - Nausea [Recovering/Resolving]
  - Memory impairment [Recovering/Resolving]
  - Panic attack [Recovering/Resolving]

NARRATIVE: CASE EVENT DATE: 20160321
